FAERS Safety Report 4844670-2 (Version None)
Quarter: 2005Q4

REPORT INFORMATION
  Report Type: 
  Country: None (occurrence: None)
  Receive Date: 20051129
  Receipt Date: 20051117
  Transmission Date: 20060501
  Serious: Yes (Other)
  Sender: FDA-Public Use
  Company Number: 2003125745

PATIENT
  Age: 50 Year
  Sex: Male
  Weight: 90 kg

DRUGS (2)
  1. ATORVASTATIN CALCIUM [Suspect]
     Indication: CEREBROVASCULAR DISORDER
     Dosage: 80 MG (1 IN 1 D), ORAL
     Route: 048
     Dates: start: 20000208, end: 20020913
  2. ASPIRIN [Concomitant]

REACTIONS (3)
  - OSTEOARTHRITIS [None]
  - OSTEONECROSIS [None]
  - OSTEOPENIA [None]
